FAERS Safety Report 15959366 (Version 3)
Quarter: 2019Q1

REPORT INFORMATION
  Report Type: Report from Study
  Country: AU (occurrence: AU)
  Receive Date: 20190214
  Receipt Date: 20190313
  Transmission Date: 20190417
  Serious: Yes (Other)
  Sender: FDA-Public Use
  Company Number: AU-REGENERON PHARMACEUTICALS, INC.-2019-16219

PATIENT

DRUGS (2)
  1. EYLEA [Suspect]
     Active Substance: AFLIBERCEPT
     Dosage: UNK, INJECTION TO RIGHT EYE
     Route: 031
     Dates: start: 201812
  2. EYLEA [Suspect]
     Active Substance: AFLIBERCEPT
     Indication: NEOVASCULAR AGE-RELATED MACULAR DEGENERATION
     Dosage: 1 DF, QD, INJECTION TO LEFT EYE
     Route: 031
     Dates: start: 20180913

REACTIONS (5)
  - Lacrimation increased [Unknown]
  - Injection site discomfort [Recovered/Resolved]
  - Neovascular age-related macular degeneration [Not Recovered/Not Resolved]
  - Visual impairment [Unknown]
  - Rhinorrhoea [Unknown]
